FAERS Safety Report 15361654 (Version 2)
Quarter: 2018Q3

REPORT INFORMATION
  Report Type: Report from Study
  Country: US (occurrence: US)
  Receive Date: 20180907
  Receipt Date: 20180926
  Transmission Date: 20181010
  Serious: Yes (Other)
  Sender: FDA-Public Use
  Company Number: US-AMGEN-USASL2018122655

PATIENT
  Age: 69 Year
  Sex: Female
  Weight: 89.34 kg

DRUGS (1)
  1. ENBREL [Suspect]
     Active Substance: ETANERCEPT
     Indication: RHEUMATOID ARTHRITIS
     Dosage: 0.98 ML, QWK
     Route: 058
     Dates: start: 20180809, end: 20180827

REACTIONS (4)
  - Infection [Unknown]
  - Thrombocytopenia [Recovered/Resolved]
  - Double stranded DNA antibody positive [Recovered/Resolved]
  - Anaemia [Recovered/Resolved]

NARRATIVE: CASE EVENT DATE: 201808
